FAERS Safety Report 9606708 (Version 3)
Quarter: 2014Q2

REPORT INFORMATION
  Report Type: Spontaneous
  Country: US (occurrence: US)
  Receive Date: 20131008
  Receipt Date: 20140523
  Transmission Date: 20141212
  Serious: No
  Sender: FDA-Public Use
  Company Number: US-AMGEN-USASP2013047974

PATIENT
  Age: 52 Year
  Sex: Female
  Weight: 58.5 kg

DRUGS (6)
  1. PROLIA [Suspect]
     Indication: OSTEOPOROSIS POSTMENOPAUSAL
     Dosage: 60 MG/ML, Q6MO
     Route: 058
     Dates: start: 20130627
  2. PREDNISONE [Concomitant]
     Dosage: 25 MG, UNK
     Route: 065
     Dates: start: 2005
  3. METHOTREXATE [Concomitant]
     Dosage: 15 MG, QWK
     Route: 065
  4. FOLIC ACID [Concomitant]
     Dosage: 1 MG, QD
     Route: 065
  5. CALCIUM WITH VITAMIN D             /00944201/ [Concomitant]
     Dosage: UNK
     Route: 065
  6. CALCIUM WITH VITAMIN D [Concomitant]

REACTIONS (11)
  - Rash macular [Unknown]
  - Limb deformity [Unknown]
  - Pain [Unknown]
  - Rash pruritic [Unknown]
  - Myopathy [Unknown]
  - Peripheral swelling [Unknown]
  - Arthralgia [Unknown]
  - Musculoskeletal pain [Unknown]
  - Urticaria [Recovered/Resolved]
  - Drug hypersensitivity [Unknown]
  - Rash [Unknown]
